FAERS Safety Report 8244736-3 (Version None)
Quarter: 2012Q1

REPORT INFORMATION
  Report Type: 
  Country: None (occurrence: None)
  Receive Date: 20120329
  Receipt Date: 20110414
  Transmission Date: 20120608
  Serious: No
  Sender: FDA-Public Use
  Company Number: US-MYLANLABS-2011S1004395

PATIENT
  Sex: Female

DRUGS (2)
  1. FENTANYL-100 [Suspect]
     Indication: NECK PAIN
     Dosage: CHANGES Q48HR
     Route: 062
  2. FENTANYL-100 [Suspect]
     Indication: BACK PAIN
     Dosage: CHANGES Q48HR
     Route: 062

REACTIONS (4)
  - DRUG INEFFECTIVE [None]
  - DRUG WITHDRAWAL SYNDROME [None]
  - PALPITATIONS [None]
  - PAIN [None]
